FAERS Safety Report 12856533 (Version 1)
Quarter: 2016Q4

REPORT INFORMATION
  Report Type: Spontaneous
  Country: US (occurrence: US)
  Receive Date: 20161018
  Receipt Date: 20161018
  Transmission Date: 20170207
  Serious: No
  Sender: FDA-Public Use
  Company Number: None

PATIENT
  Age: 77 Year
  Sex: Female
  Weight: 49.5 kg

DRUGS (1)
  1. DIPRIVAN [Suspect]
     Active Substance: PROPOFOL
     Dosage: 00 MG ONCE IVP
     Route: 042
     Dates: start: 20160930

REACTIONS (2)
  - Product quality issue [None]
  - Seizure [None]

NARRATIVE: CASE EVENT DATE: 20160930
